FAERS Safety Report 7311502-2 (Version None)
Quarter: 2011Q1

REPORT INFORMATION
  Report Type: 
  Country: None (occurrence: None)
  Receive Date: 20110224
  Receipt Date: 20110214
  Transmission Date: 20110831
  Serious: Yes (Hospitalization)
  Sender: FDA-Public Use
  Company Number: PHHY2010MX45420

PATIENT
  Age: 65 Year
  Sex: Female

DRUGS (1)
  1. CO-DIOVAN [Suspect]
     Indication: HYPERTENSION
     Dosage: 2 TABLETS (160/12.5 MG) DAILY
     Route: 048
     Dates: end: 20100710

REACTIONS (3)
  - BILE DUCT STONE [None]
  - PERITONITIS [None]
  - INTESTINAL PERFORATION [None]
